FAERS Safety Report 8455567-3 (Version None)
Quarter: 2012Q2

REPORT INFORMATION
  Report Type: 
  Country: None (occurrence: None)
  Receive Date: 20120621
  Receipt Date: 20120619
  Transmission Date: 20120825
  Serious: Yes (Disabling, Other)
  Sender: FDA-Public Use
  Company Number: US-PFIZER INC-2012100341

PATIENT
  Sex: Male

DRUGS (7)
  1. STOOL SOFTENER [Suspect]
     Dosage: UNK
  2. MAGNESIUM OXIDE [Suspect]
     Dosage: UNK
  3. CALCIUM WITH VITAMIN D [Suspect]
     Dosage: UNK
  4. PROTONIX [Suspect]
     Dosage: 40 MG, 1X/DAY
     Route: 048
  5. PLAVIX [Suspect]
     Dosage: UNK
  6. BISOPROLOL FUMARATE [Suspect]
  7. ASPIRIN [Suspect]
     Dosage: UNK

REACTIONS (5)
  - CEREBROVASCULAR ACCIDENT [None]
  - FRACTURE [None]
  - VERTEBRAL ARTERY OCCLUSION [None]
  - BRAIN STEM STROKE [None]
  - FALL [None]
